FAERS Safety Report 4655123-9 (Version None)
Quarter: 2005Q2

REPORT INFORMATION
  Report Type: 
  Country: None (occurrence: None)
  Receive Date: 20050505
  Receipt Date: 20050428
  Transmission Date: 20051028
  Serious: Yes (Hospitalization)
  Sender: FDA-Public Use
  Company Number: 863#2#2005-00004

PATIENT
  Sex: Female

DRUGS (1)
  1. IDROLAX (MACROGOL) [Suspect]
     Indication: COLONOSCOPY
     Dosage: 1.40 G (10 G/1 4 IN 4 HOUR (S)
     Route: 048
     Dates: start: 20050330, end: 20050330

REACTIONS (7)
  - ABDOMINAL OPERATION [None]
  - ABDOMINAL PAIN [None]
  - ANAL FISSURE [None]
  - ASTHENIA [None]
  - FREQUENT BOWEL MOVEMENTS [None]
  - INTESTINAL PERFORATION [None]
  - NAUSEA [None]
